FAERS Safety Report 7842280-6 (Version None)
Quarter: 2011Q4

REPORT INFORMATION
  Report Type: 
  Country: None (occurrence: None)
  Receive Date: 20111025
  Receipt Date: 20111013
  Transmission Date: 20120403
  Serious: Yes (Hospitalization)
  Sender: FDA-Public Use
  Company Number: US-JNJFOC-20111002713

PATIENT
  Sex: Male

DRUGS (3)
  1. PREDNISONE [Suspect]
     Indication: PROSTATE CANCER METASTATIC
     Route: 048
     Dates: start: 20101027
  2. ABIRATERONE ACETATE [Suspect]
     Route: 048
     Dates: start: 20101027, end: 20110925
  3. ABIRATERONE ACETATE [Suspect]
     Indication: PROSTATE CANCER METASTATIC
     Route: 048
     Dates: start: 20110928

REACTIONS (7)
  - HYPOCALCAEMIA [None]
  - DEHYDRATION [None]
  - URINARY TRACT INFECTION [None]
  - DECREASED APPETITE [None]
  - NAUSEA [None]
  - ASTHENIA [None]
  - ANAEMIA [None]
